FAERS Safety Report 9418090 (Version 3)
Quarter: 2013Q3

REPORT INFORMATION
  Report Type: Spontaneous
  Country: GB (occurrence: GB)
  Receive Date: 20130724
  Receipt Date: 20130903
  Transmission Date: 20140515
  Serious: Yes (Hospitalization)
  Sender: FDA-Public Use
  Company Number: GB-VERTEX PHARMACEUTICALS INC-2013-008211

PATIENT
  Age: 8 Year
  Sex: Female

DRUGS (7)
  1. KALYDECO [Suspect]
     Indication: CYSTIC FIBROSIS
     Dosage: 150 MG, BID
     Dates: start: 201304
  2. PANCREATIC ENZYMES [Concomitant]
  3. VITAMIN E [Concomitant]
  4. VITAMIN K [Concomitant]
  5. OMEPRAZOLE [Concomitant]
     Dosage: 10 MG, QD
  6. FLUCLOXACILLIN [Concomitant]
     Dosage: 250 MG, QD
  7. PROMIXIN [Concomitant]
     Dosage: UNK, BID

REACTIONS (1)
  - Haemoptysis [Recovered/Resolved]
